FAERS Safety Report 23457734 (Version 1)
Quarter: 2024Q1

REPORT INFORMATION
  Report Type: Spontaneous
  Country: US (occurrence: US)
  Receive Date: 20240130
  Receipt Date: 20240130
  Transmission Date: 20240410
  Serious: No
  Sender: FDA-Public Use
  Company Number: US-Dermavant-000959

PATIENT
  Sex: Female

DRUGS (5)
  1. TAPINAROF [Suspect]
     Active Substance: TAPINAROF
     Indication: Psoriasis
     Dosage: AREA OF APPLICATION: HANDS
     Route: 061
     Dates: start: 20220720, end: 202310
  2. CLOBETASOL [Concomitant]
     Active Substance: CLOBETASOL
  3. CALCIPOTRIENE [Concomitant]
     Active Substance: CALCIPOTRIENE
  4. FLUTICASONE [Concomitant]
     Active Substance: FLUTICASONE
  5. BETAMETHASONE [Concomitant]
     Active Substance: BETAMETHASONE\BETAMETHASONE DIPROPIONATE

REACTIONS (1)
  - Drug ineffective [Recovered/Resolved]
